FAERS Safety Report 12313273 (Version 5)
Quarter: 2016Q3

REPORT INFORMATION
  Report Type: Spontaneous
  Country: US (occurrence: US)
  Receive Date: 20160428
  Receipt Date: 20160916
  Transmission Date: 20161109
  Serious: No
  Sender: FDA-Public Use
  Company Number: US-PFIZER INC-2016217197

PATIENT
  Age: 81 Year
  Sex: Female
  Weight: 75.75 kg

DRUGS (3)
  1. PREDNISONE. [Suspect]
     Active Substance: PREDNISONE
     Dosage: 5 MG, UNK
  2. XELJANZ [Suspect]
     Active Substance: TOFACITINIB CITRATE
     Dosage: 5 MG, UNK
  3. PREDNISONE. [Suspect]
     Active Substance: PREDNISONE
     Dosage: UNK (TWO AND A HALF MG )

REACTIONS (10)
  - Rash [Unknown]
  - Abnormal faeces [Unknown]
  - Nausea [Unknown]
  - Abdominal discomfort [Unknown]
  - Frequent bowel movements [Unknown]
  - Flatulence [Unknown]
  - Abdominal pain upper [Unknown]
  - Blood cholesterol increased [Unknown]
  - Tinea pedis [Unknown]
  - Abdominal distension [Unknown]
